FAERS Safety Report 8154472-X (Version None)
Quarter: 2012Q1

REPORT INFORMATION
  Report Type: 
  Country: None (occurrence: None)
  Receive Date: 20120221
  Receipt Date: 20120214
  Transmission Date: 20120608
  Serious: Yes (Other)
  Sender: FDA-Public Use
  Company Number: CA-B.I. PHARMACEUTICALS,INC./RIDGEFIELD-2012-CN-00362CN

PATIENT
  Age: 81 Year
  Sex: Male
  Weight: 90.72 kg

DRUGS (4)
  1. COUMADIN [Concomitant]
     Route: 048
  2. ASAPHEN [Concomitant]
     Route: 065
  3. VESICARE [Concomitant]
  4. PRADAXA [Suspect]
     Dosage: 220 MG
     Route: 048

REACTIONS (4)
  - HAEMATURIA [None]
  - INTERNATIONAL NORMALISED RATIO DECREASED [None]
  - CREATININE RENAL CLEARANCE DECREASED [None]
  - WHITE BLOOD CELL COUNT INCREASED [None]
